FAERS Safety Report 11942391 (Version 1)
Quarter: 2016Q1

REPORT INFORMATION
  Report Type: Spontaneous
  Country: US (occurrence: US)
  Receive Date: 20160125
  Receipt Date: 20160125
  Transmission Date: 20160526
  Serious: Yes (Other)
  Sender: FDA-Public Use
  Company Number: US-AMGEN-USASP2015134891

PATIENT
  Age: 27 Year
  Sex: Male
  Weight: 54 kg

DRUGS (9)
  1. EPOGEN [Suspect]
     Active Substance: ERYTHROPOIETIN
     Indication: NEPHROGENIC ANAEMIA
     Dosage: UNK, QWK
     Route: 058
     Dates: start: 20130629
  2. EPOGEN [Suspect]
     Active Substance: ERYTHROPOIETIN
     Dosage: 4000 UNIT, QWK
     Route: 058
     Dates: start: 20150909
  3. EPOGEN [Suspect]
     Active Substance: ERYTHROPOIETIN
     Dosage: 20000 UNK, QWK
     Route: 058
     Dates: start: 20151214
  4. EPOGEN [Suspect]
     Active Substance: ERYTHROPOIETIN
     Dosage: 10 K, UNK, WEEKLY
     Route: 058
     Dates: start: 20141228, end: 20150515
  5. EPOGEN [Suspect]
     Active Substance: ERYTHROPOIETIN
     Dosage: 8 K, UNK, WEEKLY
     Route: 058
     Dates: start: 20151014, end: 20151214
  6. EPOGEN [Suspect]
     Active Substance: ERYTHROPOIETIN
     Dosage: 8000 UNIT, QWK
     Route: 058
  7. EPOGEN [Suspect]
     Active Substance: ERYTHROPOIETIN
     Dosage: 6 K, UNK, WEEKLY
     Route: 058
     Dates: start: 20150515, end: 20150613
  8. IRON [Concomitant]
     Active Substance: IRON
     Indication: ANAEMIA
     Dosage: UNK
     Route: 042
  9. EPOGEN [Suspect]
     Active Substance: ERYTHROPOIETIN
     Dosage: 4 K, UNK, WEEKLY
     Route: 058
     Dates: start: 20150613, end: 20151014

REACTIONS (2)
  - Anti-erythropoietin antibody positive [Unknown]
  - Drug ineffective [Unknown]

NARRATIVE: CASE EVENT DATE: 20151230
